FAERS Safety Report 15594526 (Version 1)
Quarter: 2018Q4

REPORT INFORMATION
  Report Type: Spontaneous
  Country: IS (occurrence: IS)
  Receive Date: 20181106
  Receipt Date: 20181106
  Transmission Date: 20190205
  Serious: Yes (Death)
  Sender: FDA-Public Use
  Company Number: US-SLATE RUN PHARMACEUTICALS-SLTR-AE-18-8

PATIENT
  Age: 39 Year
  Sex: Male
  Weight: 78 kg

DRUGS (3)
  1. AMPHETAMINE [Suspect]
     Active Substance: AMPHETAMINE
  2. BUPROPION HYDROCHLORIDE ER TABLET USP [Suspect]
     Active Substance: BUPROPION HYDROCHLORIDE
     Indication: DEPRESSION
     Dosage: FEMORAL BLOOD SHOWED BUPROPION: 1600 NG/ML (THERAPEUTIC VALUE:  50-100 NG/ML).
  3. ABILIFY [Concomitant]
     Active Substance: ARIPIPRAZOLE

REACTIONS (12)
  - General physical condition abnormal [Fatal]
  - Metabolic acidosis [Fatal]
  - Incoherent [Fatal]
  - Mania [Fatal]
  - Pain threshold decreased [Fatal]
  - Potentiating drug interaction [Fatal]
  - Abnormal behaviour [Fatal]
  - Hostility [Fatal]
  - Toxicity to various agents [Fatal]
  - Aggression [Fatal]
  - Agitation [Fatal]
  - Delirium [Fatal]
